FAERS Safety Report 7707656-6 (Version None)
Quarter: 2011Q3

REPORT INFORMATION
  Report Type: 
  Country: None (occurrence: None)
  Receive Date: 20110824
  Receipt Date: 20110819
  Transmission Date: 20111222
  Serious: Yes (Hospitalization)
  Sender: FDA-Public Use
  Company Number: FR-PFIZER INC-2011191578

PATIENT
  Age: 32 Year
  Sex: Male

DRUGS (3)
  1. VENTOLIN [Concomitant]
     Dosage: UNK
  2. IBUPROFEN [Suspect]
     Indication: RHINITIS
     Dosage: 1 DF, AS NEEDED
     Route: 048
     Dates: start: 20100610, end: 20100620
  3. SERETIDE [Concomitant]
     Dosage: UNK

REACTIONS (1)
  - RENAL FAILURE ACUTE [None]
